FAERS Safety Report 8900629 (Version 1)
Quarter: 2012Q4

REPORT INFORMATION
  Report Type: 
  Country: CA (occurrence: CA)
  Receive Date: 20121109
  Receipt Date: 20121109
  Transmission Date: 20130627
  Serious: Yes (Hospitalization, Other)
  Sender: FDA-Public Use
  Company Number: PHHO2005CA13326

PATIENT
  Age: 66 Year
  Sex: Female

DRUGS (1)
  1. SANDOSTATIN LAR (PATIENT BASIS) [Suspect]
     Indication: CARCINOID TUMOUR OF THE PANCREAS
     Dosage: 20 mg, every 3 weeks
     Dates: start: 20010701

REACTIONS (14)
  - Hyperglycaemia [Unknown]
  - Blood glucose increased [Unknown]
  - Lung infection [Unknown]
  - Dyspnoea [Unknown]
  - Heart rate increased [Unknown]
  - Hypotension [Unknown]
  - Oedema [Unknown]
  - Somnolence [Unknown]
  - Pain [Unknown]
  - Blood pressure decreased [Unknown]
  - Asthenia [Unknown]
  - Bradycardia [Unknown]
  - Tachycardia [Unknown]
  - Abdominal distension [Unknown]
